FAERS Safety Report 9207452 (Version 1)
Quarter: 2013Q2

REPORT INFORMATION
  Report Type: Spontaneous
  Country: JP (occurrence: JP)
  Receive Date: 20130403
  Receipt Date: 20130403
  Transmission Date: 20140414
  Serious: Yes (Other)
  Sender: FDA-Public Use
  Company Number: PHHY2013JP032070

PATIENT
  Sex: Male

DRUGS (4)
  1. TASIGNA [Suspect]
     Indication: CHRONIC MYELOID LEUKAEMIA
     Dosage: 600 MG, DAILY
     Route: 048
  2. TASIGNA [Suspect]
     Dosage: 300 MG, DAILY
     Route: 048
  3. TASIGNA [Suspect]
     Dosage: 600 MG, DAILY
  4. TASIGNA [Suspect]
     Dosage: 300 MG, DAILY

REACTIONS (6)
  - Myocardial infarction [Unknown]
  - Sluggishness [Unknown]
  - Dyspnoea [Unknown]
  - Chest pain [Unknown]
  - Myalgia [Unknown]
  - White blood cell count increased [Unknown]
